FAERS Safety Report 17913036 (Version 10)
Quarter: 2022Q2

REPORT INFORMATION
  Report Type: Report from Study
  Country: US (occurrence: US)
  Receive Date: 20200618
  Receipt Date: 20220627
  Transmission Date: 20220720
  Serious: Yes (Hospitalization, Other)
  Sender: FDA-Public Use
  Company Number: US-SHIRE-US202019868

PATIENT
  Age: 62 Year
  Sex: Female
  Weight: 79.365 kg

DRUGS (2)
  1. HUMAN IMMUNOGLOBULIN G [Suspect]
     Active Substance: HUMAN IMMUNOGLOBULIN G
     Indication: Immunodeficiency common variable
     Dosage: 25 GRAM, MONTHLY
     Route: 042
  2. HUMAN IMMUNOGLOBULIN G [Suspect]
     Active Substance: HUMAN IMMUNOGLOBULIN G
     Indication: Primary immunodeficiency syndrome

REACTIONS (36)
  - Trigger finger [Unknown]
  - Gallbladder disorder [Unknown]
  - Asthma [Not Recovered/Not Resolved]
  - Kidney infection [Unknown]
  - Autoimmune thyroiditis [Unknown]
  - Sepsis [Unknown]
  - Pneumonia [Unknown]
  - Urinary tract infection [Unknown]
  - Subcutaneous abscess [Unknown]
  - Viral infection [Unknown]
  - Illness [Recovered/Resolved]
  - Immunoglobulins decreased [Unknown]
  - Respiratory tract infection viral [Unknown]
  - Burns second degree [Unknown]
  - Depression [Unknown]
  - Bronchitis [Recovered/Resolved]
  - Chromaturia [Unknown]
  - Suspected COVID-19 [Unknown]
  - Pain [Unknown]
  - Fatigue [Unknown]
  - Oropharyngeal pain [Unknown]
  - Migraine [Unknown]
  - Product availability issue [Unknown]
  - Diarrhoea [Unknown]
  - Blood pressure decreased [Unknown]
  - Pyrexia [Unknown]
  - Blood potassium decreased [Unknown]
  - Dehydration [Unknown]
  - Seasonal allergy [Unknown]
  - Hypersensitivity [Unknown]
  - Insomnia [Unknown]
  - Upper respiratory tract infection [Unknown]
  - Physical deconditioning [Unknown]
  - Therapy interrupted [Unknown]
  - Dyspnoea [Unknown]
  - Depressed mood [Unknown]

NARRATIVE: CASE EVENT DATE: 20220425
